FAERS Safety Report 4555391-8 (Version None)
Quarter: 2005Q1

REPORT INFORMATION
  Report Type: 
  Country: None (occurrence: None)
  Receive Date: 20050118
  Receipt Date: 20050118
  Transmission Date: 20050727
  Serious: Yes (Life-Threatening, Hospitalization)
  Sender: FDA-Public Use
  Company Number: None

PATIENT
  Age: 74 Year
  Sex: Male

DRUGS (16)
  1. WARFARIN SODIUM [Suspect]
     Indication: ATRIAL FIBRILLATION
     Dates: start: 19970801, end: 20041105
  2. ALTACE [Concomitant]
  3. ASPIRIN [Concomitant]
  4. BEXTRA [Concomitant]
  5. CASODEX [Concomitant]
  6. CELEXA [Concomitant]
  7. DIGOXIN [Concomitant]
  8. DILTIAZEM [Concomitant]
  9. LASIX [Concomitant]
  10. LEVOXYL [Concomitant]
  11. DEPAKOTE [Concomitant]
  12. KCL TAB [Concomitant]
  13. CLONAZEPAM [Concomitant]
  14. HYDROXYZINE [Concomitant]
  15. PROPOXYPHENE [Concomitant]
  16. COUMADIN [Concomitant]

REACTIONS (4)
  - HAEMORRHAGIC STROKE [None]
  - LOBAR PNEUMONIA [None]
  - MENTAL STATUS CHANGES [None]
  - RESPIRATORY DISTRESS [None]
